FAERS Safety Report 12248060 (Version 1)
Quarter: 2016Q2

REPORT INFORMATION
  Report Type: Other
  Country: FI (occurrence: FI)
  Receive Date: 20160408
  Receipt Date: 20160408
  Transmission Date: 20160815
  Serious: Yes (Death)
  Sender: FDA-Public Use
  Company Number: FI-JUBILANT GENERICS LIMITED-1050357

PATIENT
  Age: 81 Year
  Sex: Male

DRUGS (6)
  1. IBUPROFEN. [Concomitant]
     Active Substance: IBUPROFEN
  2. PARACETAMOL UNKNOWN [Suspect]
     Active Substance: ACETAMINOPHEN
  3. GABAPENTIN UNKNOWN [Suspect]
     Active Substance: GABAPENTIN
  4. VALSARTAN. [Suspect]
     Active Substance: VALSARTAN
  5. ACEBUTOLOL UNKNOWN [Suspect]
     Active Substance: ACEBUTOLOL
  6. ETORICOXIB [Concomitant]
     Active Substance: ETORICOXIB

REACTIONS (2)
  - Completed suicide [Fatal]
  - Intentional overdose [Fatal]

NARRATIVE: CASE EVENT DATE: 20160329
